FAERS Safety Report 12726183 (Version 1)
Quarter: 2016Q3

REPORT INFORMATION
  Report Type: Spontaneous
  Country: US (occurrence: US)
  Receive Date: 20160906
  Receipt Date: 20160906
  Transmission Date: 20161109
  Serious: Yes (Disabling)
  Sender: FDA-Public Use
  Company Number: None

PATIENT
  Age: 53 Year
  Sex: Female
  Weight: 45 kg

DRUGS (5)
  1. EQUATE ANTACID/ANTI-GAS REGULAR STRENGTH [Suspect]
     Active Substance: ALUMINUM HYDROXIDE\DIMETHICONE\MAGNESIUM HYDROXIDE
     Indication: HYPERCHLORHYDRIA
     Dosage: 2 TEASPOONSFUL, OTHER
     Route: 048
     Dates: start: 20160906, end: 20160906
  2. EQUATE ANTACID/ANTI-GAS REGULAR STRENGTH [Suspect]
     Active Substance: ALUMINUM HYDROXIDE\DIMETHICONE\MAGNESIUM HYDROXIDE
     Indication: FLATULENCE
     Dosage: 2 TEASPOONSFUL, OTHER
     Route: 048
     Dates: start: 20160906, end: 20160906
  3. SYMBICORT [Concomitant]
     Active Substance: BUDESONIDE\FORMOTEROL FUMARATE DIHYDRATE
  4. PROVENTALIN [Concomitant]
     Active Substance: ALBUTEROL SULFATE
  5. ATROVENT [Concomitant]
     Active Substance: IPRATROPIUM BROMIDE

REACTIONS (14)
  - Headache [None]
  - Dysphagia [None]
  - Oral discomfort [None]
  - Oesophageal pain [None]
  - Chest pain [None]
  - Oral pain [None]
  - Chest discomfort [None]
  - Hypoaesthesia [None]
  - Product formulation issue [None]
  - Throat irritation [None]
  - Abdominal pain upper [None]
  - Ear pain [None]
  - Oropharyngeal pain [None]
  - Hot flush [None]

NARRATIVE: CASE EVENT DATE: 20160906
